FAERS Safety Report 8862566 (Version 2)
Quarter: 2012Q4

REPORT INFORMATION
  Report Type: 
  Country: IT (occurrence: IT)
  Receive Date: 20121026
  Receipt Date: 20121126
  Transmission Date: 20130627
  Serious: Yes (Hospitalization)
  Sender: FDA-Public Use
  Company Number: IT-JNJFOC-20121010915

PATIENT
  Age: 11 Year
  Sex: Female

DRUGS (5)
  1. DOXORUBICIN [Suspect]
     Indication: BONE SARCOMA
     Dosage: infusion over 8 hours
     Route: 042
  2. DOXORUBICIN HYDROCHLORIDE [Suspect]
     Indication: BONE SARCOMA
     Dosage: infusion over 8 hours
     Route: 042
  3. METHOTREXATE [Suspect]
     Indication: BONE SARCOMA
     Route: 065
  4. CISPLATIN [Suspect]
     Indication: BONE SARCOMA
     Dosage: 240 mg intra-arterial
     Route: 013
  5. ETOPOSIDE [Suspect]
     Indication: BONE SARCOMA
     Route: 065

REACTIONS (2)
  - Acute lymphocytic leukaemia [Unknown]
  - Off label use [Unknown]
